FAERS Safety Report 10589963 (Version 1)
Quarter: 2014Q4

REPORT INFORMATION
  Report Type: Spontaneous
  Country: JP (occurrence: JP)
  Receive Date: 20141118
  Receipt Date: 20141118
  Transmission Date: 20150529
  Serious: Yes (Hospitalization)
  Sender: FDA-Public Use
  Company Number: JP-ELI_LILLY_AND_COMPANY-JP201411006292

PATIENT
  Age: 35 Year
  Sex: Male

DRUGS (4)
  1. HUMALOG [Suspect]
     Active Substance: INSULIN LISPRO
     Dosage: 1800 IU, UNK
     Route: 058
     Dates: start: 201308
  2. HUMALOG [Suspect]
     Active Substance: INSULIN LISPRO
     Dosage: 30 IU, UNK
     Route: 058
     Dates: start: 200908
  3. HUMALOG [Suspect]
     Active Substance: INSULIN LISPRO
     Indication: TYPE 2 DIABETES MELLITUS
     Dosage: 18 IU, UNK
     Route: 058
     Dates: start: 2008
  4. HUMALOG [Suspect]
     Active Substance: INSULIN LISPRO
     Dosage: 600 IU, UNK
     Route: 058
     Dates: start: 201305

REACTIONS (4)
  - Diabetes mellitus inadequate control [Unknown]
  - Suicide attempt [Unknown]
  - Intentional overdose [Recovered/Resolved]
  - Hypoglycaemic coma [Unknown]

NARRATIVE: CASE EVENT DATE: 200908
